FAERS Safety Report 9128530 (Version 1)
Quarter: 2013Q1

REPORT INFORMATION
  Report Type: Spontaneous
  Country: US (occurrence: US)
  Receive Date: 20130228
  Receipt Date: 20130228
  Transmission Date: 20140127
  Serious: No
  Sender: FDA-Public Use
  Company Number: US-GLAXOSMITHKLINE-A1002920A

PATIENT
  Sex: Female

DRUGS (2)
  1. IMITREX [Suspect]
     Indication: MIGRAINE
     Route: 065
  2. ASPIRIN [Suspect]
     Indication: MIGRAINE
     Route: 065

REACTIONS (5)
  - Abdominal discomfort [Unknown]
  - Decreased appetite [Unknown]
  - Heart rate increased [Unknown]
  - Migraine [Unknown]
  - Drug ineffective [Unknown]
